FAERS Safety Report 4835330-2 (Version None)
Quarter: 2005Q4

REPORT INFORMATION
  Report Type: 
  Country: None (occurrence: None)
  Receive Date: 20051122
  Receipt Date: 20030407
  Transmission Date: 20060501
  Serious: Yes (Hospitalization, Other)
  Sender: FDA-Public Use
  Company Number: US-MERCK-0304USA00762

PATIENT
  Age: 51 Year
  Sex: Male
  Weight: 109 kg

DRUGS (8)
  1. VIOXX [Suspect]
     Indication: BACK PAIN
     Route: 048
     Dates: start: 20010616, end: 20010801
  2. ATENOLOL [Concomitant]
     Route: 065
  3. PRINIVIL [Concomitant]
     Route: 048
  4. ASPIRIN [Concomitant]
     Route: 065
  5. MOTRIN [Concomitant]
     Route: 065
     Dates: start: 19970101
  6. ZOCOR [Concomitant]
     Route: 048
  7. GLYBURIDE [Concomitant]
     Route: 065
     Dates: start: 19920101
  8. PEPCID [Concomitant]
     Indication: GASTRITIS
     Route: 065

REACTIONS (30)
  - ANGINA PECTORIS [None]
  - ANGINA UNSTABLE [None]
  - ASTHENIA [None]
  - BLOOD CREATININE INCREASED [None]
  - BLOOD PRESSURE INCREASED [None]
  - BURSITIS [None]
  - CARDIAC FAILURE [None]
  - CARDIOMEGALY [None]
  - CHEST PAIN [None]
  - CORONARY ARTERY DISEASE [None]
  - CORONARY ARTERY RESTENOSIS [None]
  - DEPRESSION [None]
  - EMOTIONAL DISTRESS [None]
  - FACIAL PALSY [None]
  - GASTRITIS [None]
  - GASTROOESOPHAGEAL REFLUX DISEASE [None]
  - HAEMATEMESIS [None]
  - HEART INJURY [None]
  - HYPERGLYCAEMIA [None]
  - INJURY [None]
  - LOSS OF CONSCIOUSNESS [None]
  - MIGRAINE [None]
  - MYOCARDIAL ISCHAEMIA [None]
  - RASH PRURITIC [None]
  - SCROTAL ABSCESS [None]
  - SCROTAL HAEMATOMA [None]
  - SINGLE VESSEL BYPASS GRAFT [None]
  - SYNCOPE [None]
  - SYNCOPE VASOVAGAL [None]
  - ULCER HAEMORRHAGE [None]
